FAERS Safety Report 6438479-6 (Version None)
Quarter: 2009Q4

REPORT INFORMATION
  Report Type: 
  Country: None (occurrence: None)
  Receive Date: 20091112
  Receipt Date: 20091109
  Transmission Date: 20100525
  Serious: Yes (Hospitalization)
  Sender: FDA-Public Use
  Company Number: US-GENENTECH-293483

PATIENT
  Sex: Female
  Weight: 91.882 kg

DRUGS (7)
  1. BEVACIZUMAB [Suspect]
     Indication: NON-SMALL CELL LUNG CANCER
     Dosage: 15 MG/K/H, UNK
     Dates: start: 20091013
  2. DOCETAXEL [Suspect]
     Indication: NON-SMALL CELL LUNG CANCER
     Dosage: 60 MG/M2, UNK
     Dates: start: 20091013
  3. CARBOPLATIN [Suspect]
     Indication: NON-SMALL CELL LUNG CANCER
     Dosage: 5 AUC, UNK
     Dates: start: 20091013
  4. MILES MAGIC MIXTURE (UNK INGREDIENTS) [Concomitant]
     Indication: DRUG USE FOR UNKNOWN INDICATION
     Dosage: 5 UNK, QID
     Dates: start: 20090908
  5. ARIXTRA [Concomitant]
     Indication: DRUG USE FOR UNKNOWN INDICATION
     Dosage: 7.5 MG, QD
     Dates: start: 20091015
  6. COUMADIN [Concomitant]
     Indication: DRUG USE FOR UNKNOWN INDICATION
  7. FERROUS SULFATE TAB [Concomitant]
     Indication: DRUG USE FOR UNKNOWN INDICATION
     Dosage: 325 MG, UNK
     Dates: start: 20091021

REACTIONS (2)
  - ANAEMIA [None]
  - THROMBOCYTOPENIA [None]
